FAERS Safety Report 21315059 (Version 1)
Quarter: 2022Q3

REPORT INFORMATION
  Report Type: Spontaneous
  Country: FR (occurrence: FR)
  Receive Date: 20220909
  Receipt Date: 20220909
  Transmission Date: 20221027
  Serious: Yes (Life-Threatening)
  Sender: FDA-Public Use
  Company Number: None

PATIENT
  Age: 68 Year
  Sex: Male

DRUGS (1)
  1. ATRACURIUM BESYLATE [Suspect]
     Active Substance: ATRACURIUM BESYLATE
     Indication: Neuromuscular blocking therapy
     Dosage: 50 MG, SINGLE
     Route: 042
     Dates: start: 20220825, end: 20220825

REACTIONS (5)
  - Arrhythmia [Recovered/Resolved]
  - Cardiac arrest [Recovered/Resolved]
  - Hypotension [Recovered/Resolved]
  - Febrile bone marrow aplasia [Unknown]
  - Lung disorder [Unknown]

NARRATIVE: CASE EVENT DATE: 20220825
